FAERS Safety Report 10184365 (Version 1)
Quarter: 2014Q2

REPORT INFORMATION
  Report Type: Spontaneous
  Country: NL (occurrence: NL)
  Receive Date: 20140521
  Receipt Date: 20140521
  Transmission Date: 20141212
  Serious: Yes (Hospitalization)
  Sender: FDA-Public Use
  Company Number: NL-AMGEN-NLDSP2014036321

PATIENT
  Age: 19 Year
  Sex: Female

DRUGS (1)
  1. NEULASTA [Suspect]
     Indication: PROPHYLAXIS
     Dosage: INJVLST 10 MG/ML WWSP 0.6ML, Q2WK
     Route: 058
     Dates: start: 20140322, end: 20140515

REACTIONS (2)
  - Investigation [Unknown]
  - Pyrexia [Unknown]
